FAERS Safety Report 23257849 (Version 2)
Quarter: 2024Q1

REPORT INFORMATION
  Report Type: Spontaneous
  Country: US (occurrence: US)
  Receive Date: 20231204
  Receipt Date: 20240226
  Transmission Date: 20240410
  Serious: No
  Sender: FDA-Public Use
  Company Number: US-SA-SAC20231123000717

PATIENT
  Age: 43 Year
  Sex: Male

DRUGS (1)
  1. DUPIXENT [Suspect]
     Active Substance: DUPILUMAB
     Indication: Dermatitis atopic
     Dosage: 300 MG, QOW
     Route: 058

REACTIONS (10)
  - Nail bed disorder [Unknown]
  - Skin indentation [Unknown]
  - Gastroenteritis viral [Recovering/Resolving]
  - Onychoclasis [Unknown]
  - Nail disorder [Unknown]
  - Arthritis [Unknown]
  - Skin fissures [Unknown]
  - Erythema [Unknown]
  - Dry skin [Unknown]
  - Therapeutic response decreased [Unknown]
